FAERS Safety Report 11884413 (Version 2)
Quarter: 2016Q1

REPORT INFORMATION
  Report Type: Report from Study
  Country: US (occurrence: US)
  Receive Date: 20160103
  Receipt Date: 20160217
  Transmission Date: 20160526
  Serious: No
  Sender: FDA-Public Use
  Company Number: PHEH2015US027480

PATIENT
  Age: 42 Year
  Sex: Female
  Weight: 54.42 kg

DRUGS (1)
  1. GILENYA [Suspect]
     Active Substance: FINGOLIMOD HYDROCHLORIDE
     Indication: MULTIPLE SCLEROSIS
     Dosage: 0.5 MG, QD
     Route: 048
     Dates: start: 20150325

REACTIONS (7)
  - Movement disorder [Unknown]
  - Visual impairment [Recovering/Resolving]
  - Balance disorder [Unknown]
  - Fall [Unknown]
  - Ocular hyperaemia [Unknown]
  - Headache [Unknown]
  - Dyspnoea [Unknown]

NARRATIVE: CASE EVENT DATE: 201512
